FAERS Safety Report 10037284 (Version 1)
Quarter: 2014Q1

REPORT INFORMATION
  Report Type: Spontaneous
  Country: IT (occurrence: IT)
  Receive Date: 20140326
  Receipt Date: 20140326
  Transmission Date: 20141002
  Serious: Yes (Hospitalization)
  Sender: FDA-Public Use
  Company Number: IT-RANBAXY-2014RR-79190

PATIENT
  Age: 46 Year
  Sex: Female

DRUGS (8)
  1. ENALAPRIL [Suspect]
     Indication: PRODUCT USED FOR UNKNOWN INDICATION
     Dosage: 100 MG, COMPLETE
     Route: 048
     Dates: start: 20130304, end: 20130304
  2. CITALOPRAM [Suspect]
     Indication: PRODUCT USED FOR UNKNOWN INDICATION
     Dosage: 15 ML, COMPLETE
     Route: 048
     Dates: start: 20130304, end: 20130304
  3. TORADOL [Suspect]
     Indication: PRODUCT USED FOR UNKNOWN INDICATION
     Dosage: 20 ML, COMPLETE
     Route: 048
     Dates: start: 20130304, end: 20130304
  4. TRITTICO [Suspect]
     Indication: PRODUCT USED FOR UNKNOWN INDICATION
     Dosage: 30 ML, COMPLETE
     Route: 048
     Dates: start: 20130304, end: 20140304
  5. PARACODINA [Suspect]
     Indication: PRODUCT USED FOR UNKNOWN INDICATION
     Dosage: 15 G, COMPLETE
     Route: 048
     Dates: start: 20130304, end: 20130304
  6. DEPAKIN [Suspect]
     Indication: PRODUCT USED FOR UNKNOWN INDICATION
     Dosage: 1 DF, COMPLETE
     Route: 048
     Dates: start: 20130304, end: 20130304
  7. TOLEP [Suspect]
     Indication: PRODUCT USED FOR UNKNOWN INDICATION
     Dosage: 6 DF, COMPLETE
     Route: 048
     Dates: start: 20130304, end: 20130304
  8. CONTRAMAL [Suspect]
     Indication: PRODUCT USED FOR UNKNOWN INDICATION
     Dosage: 30 ML, COMPLETE
     Route: 065
     Dates: start: 20130304, end: 20130304

REACTIONS (1)
  - Coma [Recovered/Resolved]
